FAERS Safety Report 17690202 (Version 1)
Quarter: 2020Q2

REPORT INFORMATION
  Report Type: Other
  Country: US (occurrence: US)
  Receive Date: 20200421
  Receipt Date: 20200421
  Transmission Date: 20200714
  Serious: Yes (Life-Threatening, Hospitalization, Other)
  Sender: FDA-Public Use
  Company Number: US-DENTSPLY-2020SCDP000142

PATIENT
  Age: 2 Month
  Sex: Male
  Weight: 12 kg

DRUGS (5)
  1. HYALURONIDASE [Concomitant]
     Active Substance: HYALURONIDASE
     Indication: PRODUCT USED FOR UNKNOWN INDICATION
     Dosage: 3 MILLILITER, TOTAL, HYALURONIDASE 7.5 IU/ML (TOTAL OF 3 ML)
  2. LIDOCAINE. [Suspect]
     Active Substance: LIDOCAINE
     Indication: NERVE BLOCK
     Dosage: 120 MILLIGRAM, TOTAL
  3. BUPIVACAINE. [Suspect]
     Active Substance: BUPIVACAINE
     Indication: NERVE BLOCK
     Dosage: 22.5 MILLIGRAM, TOTAL
  4. BUPIVACAINE. [Suspect]
     Active Substance: BUPIVACAINE
     Dosage: 1.5 MILLILITER, TOTAL, THE OPHTHALMOLOGIST PERFORMED A SINGLE SHOT EXTRACONAL BLOCK, WITH 1.5 ML OF
  5. LIDOCAINE. [Suspect]
     Active Substance: LIDOCAINE
     Dosage: 1.5 MILLILITER, TOTAL, THE OPHTHALMOLOGIST PERFORMED A SINGLE SHOT EXTRACONAL BLOCK, WITH 1.5 ML OF

REACTIONS (7)
  - Electrocardiogram T wave amplitude increased [Recovered/Resolved]
  - Oxygen saturation decreased [None]
  - Electrocardiogram ST segment elevation [Recovered/Resolved]
  - Local anaesthetic systemic toxicity [None]
  - Agitation [None]
  - Generalised tonic-clonic seizure [Recovered/Resolved]
  - Tachycardia [Recovered/Resolved]
